FAERS Safety Report 10194455 (Version 2)
Quarter: 2014Q2

REPORT INFORMATION
  Report Type: Spontaneous
  Country: FR (occurrence: FR)
  Receive Date: 20140526
  Receipt Date: 20140526
  Transmission Date: 20141212
  Serious: Yes (Hospitalization)
  Sender: FDA-Public Use
  Company Number: FR-009507513-1402FRA009151

PATIENT
  Age: 76 Year
  Sex: Female

DRUGS (3)
  1. SINEMET UNSCORED TABLET [Suspect]
     Indication: PARKINSON^S DISEASE
     Dosage: 8 DF, QD
     Route: 048
  2. SINEMET L.P. [Interacting]
     Indication: PARKINSON^S DISEASE
     Dosage: 1 DF, QD
     Route: 048
  3. VOGALENE [Interacting]
     Dosage: UNK
     Dates: start: 20140201, end: 20140215

REACTIONS (4)
  - Fracture [Unknown]
  - Fall [Unknown]
  - Tremor [Recovering/Resolving]
  - Contraindication to medical treatment [Unknown]
